FAERS Safety Report 18651337 (Version 1)
Quarter: 2020Q4

REPORT INFORMATION
  Report Type: Other
  Country: ET (occurrence: ET)
  Receive Date: 20201223
  Receipt Date: 20201223
  Transmission Date: 20210114
  Serious: Yes (Hospitalization, Other)
  Sender: FDA-Public Use
  Company Number: ET-FDC LIMITED-2103371

PATIENT
  Age: 67 Year
  Sex: Male

DRUGS (3)
  1. CIPROFLOXACIN. [Suspect]
     Active Substance: CIPROFLOXACIN
     Indication: URINARY TRACT INFECTION
     Route: 048
  2. TRIMETHOPRIM-SULFAMETHOXAZOLE [Suspect]
     Active Substance: SULFAMETHOXAZOLE\TRIMETHOPRIM
     Route: 048
  3. TINIDAZOLE. [Suspect]
     Active Substance: TINIDAZOLE
     Route: 048

REACTIONS (1)
  - Pseudomembranous colitis [Recovering/Resolving]
